FAERS Safety Report 21855882 (Version 3)
Quarter: 2024Q3

REPORT INFORMATION
  Report Type: Report from Study
  Country: CA (occurrence: CA)
  Receive Date: 20230112
  Receipt Date: 20240702
  Transmission Date: 20241016
  Serious: Yes (Hospitalization, Other)
  Sender: HLS THERAPEUTICS
  Company Number: CA-HLS-202202360

PATIENT
  Age: 39 Year
  Sex: Male

DRUGS (2)
  1. CLOZARIL [Suspect]
     Active Substance: CLOZAPINE
     Indication: Product used for unknown indication
     Dosage: 150MG/D
     Route: 048
     Dates: start: 20210414
  2. CLOZARIL [Suspect]
     Active Substance: CLOZAPINE
     Indication: Product used for unknown indication
     Dosage: ON AN UNKNOWN DATE IN 2022, DAILY DOSE DECREASED TO 125MG/DAY. ON 19-DEC-2022 DOSE INCREASED TO 137.
     Route: 048

REACTIONS (7)
  - Neoplasm malignant [Unknown]
  - Tobacco user [Recovered/Resolved]
  - Fatigue [Unknown]
  - Glycosylated haemoglobin increased [Unknown]
  - Orthostatic hypotension [Unknown]
  - Psychotic symptom [Unknown]
  - Somnolence [Unknown]

NARRATIVE: CASE EVENT DATE: 20221001
